FAERS Safety Report 10021324 (Version 1)
Quarter: 2014Q1

REPORT INFORMATION
  Report Type: Spontaneous
  Country: US (occurrence: US)
  Receive Date: 20140319
  Receipt Date: 20140319
  Transmission Date: 20141002
  Serious: Yes (Other)
  Sender: FDA-Public Use
  Company Number: US-TEVA-468582USA

PATIENT
  Age: 53 Year
  Sex: Male
  Weight: 104.42 kg

DRUGS (4)
  1. AZILECT [Suspect]
     Indication: PARKINSON^S DISEASE
     Dosage: ^1^
     Dates: start: 201401
  2. BABY ASPIRIN [Concomitant]
     Indication: ANTICOAGULANT THERAPY
  3. MULTIVITAMIN WITH HIGH ANTIOXIDANTS [Concomitant]
  4. ZANTAC [Concomitant]
     Indication: DYSPEPSIA

REACTIONS (8)
  - Parkinson^s disease [Not Recovered/Not Resolved]
  - Fatigue [Not Recovered/Not Resolved]
  - Fatigue [Not Recovered/Not Resolved]
  - Tremor [Not Recovered/Not Resolved]
  - Activities of daily living impaired [Not Recovered/Not Resolved]
  - Memory impairment [Not Recovered/Not Resolved]
  - Memory impairment [Not Recovered/Not Resolved]
  - Drug effect decreased [Not Recovered/Not Resolved]
